FAERS Safety Report 9300752 (Version 3)
Quarter: 2013Q3

REPORT INFORMATION
  Report Type: Report from Study
  Country: US (occurrence: US)
  Receive Date: 20130521
  Receipt Date: 20130808
  Transmission Date: 20140515
  Serious: Yes (Life-Threatening)
  Sender: FDA-Public Use
  Company Number: US-ACTELION-A-NJ2013-78918

PATIENT
  Age: 47 Year
  Sex: Female
  Weight: 90.7 kg

DRUGS (7)
  1. TRACLEER [Suspect]
     Indication: PULMONARY ARTERIAL HYPERTENSION
     Dosage: UNK
     Route: 048
  2. ADCIRCA [Concomitant]
  3. CIALIS [Concomitant]
  4. FLUOXETINE [Concomitant]
     Dosage: 20 MG, QD
     Route: 048
  5. AMLODIPINE W/BENAZEPRIL [Concomitant]
     Dosage: 10 TO 20 MG, QD
     Route: 048
  6. XANAX [Concomitant]
     Dosage: 0.5 MG, BID
     Route: 048
  7. IBUPROFEN [Concomitant]

REACTIONS (18)
  - Epistaxis [Not Recovered/Not Resolved]
  - Muscle spasms [Not Recovered/Not Resolved]
  - Pulmonary arterial hypertension [Recovering/Resolving]
  - Haemoptysis [Recovering/Resolving]
  - Pulmonary arterial pressure increased [Recovering/Resolving]
  - Anaemia [Not Recovered/Not Resolved]
  - Haemoglobin decreased [Not Recovered/Not Resolved]
  - Haematocrit decreased [Not Recovered/Not Resolved]
  - Vertigo [Not Recovered/Not Resolved]
  - Fatigue [Recovering/Resolving]
  - Sleep apnoea syndrome [Unknown]
  - Irritability [Unknown]
  - Arthralgia [Unknown]
  - Prothrombin time prolonged [Unknown]
  - International normalised ratio increased [Unknown]
  - Oropharyngeal pain [Unknown]
  - No therapeutic response [Recovering/Resolving]
  - Dyspnoea exertional [Unknown]
